FAERS Safety Report 14447032 (Version 3)
Quarter: 2020Q2

REPORT INFORMATION
  Report Type: Spontaneous
  Country: US (occurrence: US)
  Receive Date: 20180126
  Receipt Date: 20200507
  Transmission Date: 20200713
  Serious: Yes (Hospitalization, Other)
  Sender: FDA-Public Use
  Company Number: US-PFIZER INC-2018033299

PATIENT
  Age: 70 Year
  Sex: Male

DRUGS (2)
  1. SUTENT [Suspect]
     Active Substance: SUNITINIB MALATE
     Indication: RENAL CANCER
     Dosage: 50 MG, CYCLIC (ONE WEEK ON AND ONE WEEK OFF)
     Route: 048
     Dates: end: 20180103
  2. SUTENT [Suspect]
     Active Substance: SUNITINIB MALATE
     Dosage: 50 MG, 1X/DAY
     Route: 048

REACTIONS (5)
  - Palmar erythema [Unknown]
  - Mucosal inflammation [Unknown]
  - Pain in extremity [Unknown]
  - Thrombocytopenia [Unknown]
  - Oral discomfort [Unknown]
